FAERS Safety Report 6810507-5 (Version None)
Quarter: 2010Q2

REPORT INFORMATION
  Report Type: 
  Country: None (occurrence: None)
  Receive Date: 20100630
  Receipt Date: 20100623
  Transmission Date: 20101027
  Serious: Yes (Other)
  Sender: FDA-Public Use
  Company Number: GB-PFIZER INC-2010051996

PATIENT
  Age: 50 Year
  Sex: Female
  Weight: 63.5 kg

DRUGS (9)
  1. XALATAN [Suspect]
     Indication: GLAUCOMA
     Dosage: UNK, AT NIGHT
     Route: 047
     Dates: start: 20090914
  2. FELODIPINE [Concomitant]
     Indication: BLOOD PRESSURE INCREASED
     Dosage: 2.5 MG, 1X/DAY
     Route: 048
     Dates: start: 20071207
  3. OMEPRAZOLE [Concomitant]
     Indication: DYSPEPSIA
     Dosage: 20 MG, 1X/DAY
     Route: 048
     Dates: start: 20091020
  4. DOTHIEPIN HYDROCHLORIDE [Concomitant]
     Indication: IRRITABLE BOWEL SYNDROME
     Dosage: 50 MG, 1X/DAY
     Route: 048
     Dates: start: 20100121
  5. DOTHIEPIN HYDROCHLORIDE [Concomitant]
     Indication: DYSPEPSIA
  6. COLOFAC [Concomitant]
     Indication: IRRITABLE BOWEL SYNDROME
     Dosage: 1 DF, 3X/DAY
     Route: 048
     Dates: start: 20100121
  7. COLOFAC [Concomitant]
     Indication: DYSPEPSIA
  8. FYBOGEL [Concomitant]
     Indication: IRRITABLE BOWEL SYNDROME
     Dosage: 1 DF, 2X/DAY
     Route: 048
     Dates: start: 20100121
  9. FYBOGEL [Concomitant]
     Indication: DYSPEPSIA

REACTIONS (1)
  - EPISTAXIS [None]
